FAERS Safety Report 4466025-5 (Version None)
Quarter: 2004Q3

REPORT INFORMATION
  Report Type: 
  Country: None (occurrence: None)
  Receive Date: 20040930
  Receipt Date: 20040930
  Transmission Date: 20050211
  Serious: Yes (Life-Threatening, Hospitalization)
  Sender: FDA-Public Use
  Company Number: None

PATIENT
  Sex: Male

DRUGS (11)
  1. QUETIAPINE [Suspect]
     Indication: SCHIZOPHRENIA
     Dosage: 150 MG AM ORAL
     Route: 048
  2. QUETIAPINE [Suspect]
     Indication: SCHIZOPHRENIA
     Dosage: 350 MG HS ORAL
     Route: 048
  3. LORAZEPAM [Concomitant]
  4. LEVOTHYROXINE SODIUM [Concomitant]
  5. VALPROIC ACID [Concomitant]
  6. RABEPRAZOLE SODIUM [Concomitant]
  7. CITALOPRAM [Concomitant]
  8. PRIMIDONE [Concomitant]
  9. OXYBUTININ [Concomitant]
  10. PHENYTOIN [Concomitant]
  11. TRAZODONE HCL [Concomitant]

REACTIONS (3)
  - CONVULSION [None]
  - DEHYDRATION [None]
  - DIABETIC KETOACIDOSIS [None]
